FAERS Safety Report 26020200 (Version 1)
Quarter: 2025Q4

REPORT INFORMATION
  Report Type: Spontaneous
  Country: US (occurrence: US)
  Receive Date: 20251110
  Receipt Date: 20251110
  Transmission Date: 20260117
  Serious: No
  Sender: TENSHI KAIZEN PRIVATE LIMITED
  Company Number: US-TENSHI KAIZEN PRIVATE LIMITED-2024TK000118

PATIENT
  Age: 62 Year
  Sex: Female
  Weight: 72.6 kg

DRUGS (1)
  1. LORATADINE [Suspect]
     Active Substance: LORATADINE
     Indication: Hypersensitivity
     Dosage: 1 TABLET ORALLY
     Route: 048
     Dates: start: 20241015, end: 20241031

REACTIONS (4)
  - Drug ineffective [Unknown]
  - Product physical issue [Unknown]
  - Product taste abnormal [Unknown]
  - Poor quality product administered [Unknown]
